FAERS Safety Report 25690461 (Version 1)
Quarter: 2025Q3

REPORT INFORMATION
  Report Type: Spontaneous
  Country: CN (occurrence: CN)
  Receive Date: 20250818
  Receipt Date: 20250818
  Transmission Date: 20251021
  Serious: Yes (Other)
  Sender: DAIICHI
  Company Number: CN-DSJP-DS-2025-158882-CN

PATIENT
  Sex: Female
  Weight: 46 kg

DRUGS (2)
  1. TRASTUZUMAB DERUXTECAN [Suspect]
     Active Substance: TRASTUZUMAB DERUXTECAN
     Indication: Breast cancer
     Dosage: 270 MG, QD
     Route: 041
     Dates: start: 20250728, end: 20250728
  2. PERJETA [Suspect]
     Active Substance: PERTUZUMAB
     Indication: Breast cancer
     Dosage: 420 MG, QD
     Route: 041
     Dates: start: 20250728, end: 20250728

REACTIONS (1)
  - Myelosuppression [Unknown]
